FAERS Safety Report 5379162-8 (Version None)
Quarter: 2007Q3

REPORT INFORMATION
  Report Type: 
  Country: None (occurrence: None)
  Receive Date: 20070705
  Receipt Date: 20070628
  Transmission Date: 20080115
  Serious: Yes (Other)
  Sender: FDA-Public Use
  Company Number: CH-BRISTOL-MYERS SQUIBB COMPANY-13825401

PATIENT
  Sex: Male

DRUGS (3)
  1. BLEOMYCIN [Suspect]
     Indication: TESTICULAR NEOPLASM
  2. ETOPOSIDE [Suspect]
     Indication: TESTICULAR NEOPLASM
  3. CISPLATIN [Suspect]
     Indication: TESTICULAR NEOPLASM

REACTIONS (1)
  - PNEUMONITIS [None]
